FAERS Safety Report 17273978 (Version 3)
Quarter: 2020Q1

REPORT INFORMATION
  Report Type: Spontaneous
  Country: US (occurrence: US)
  Receive Date: 20200115
  Receipt Date: 20200218
  Transmission Date: 20200409
  Serious: Yes (Other)
  Sender: FDA-Public Use
  Company Number: US-AKORN PHARMACEUTICALS-2020AKN00014

PATIENT
  Age: 46 Year
  Sex: Female

DRUGS (5)
  1. VALTREX [Concomitant]
     Active Substance: VALACYCLOVIR HYDROCHLORIDE
     Dosage: 2 TABLETS, REPEAT IN 12 HOURS AS NEEDED
     Route: 048
     Dates: start: 20170109
  2. MYORISAN [Suspect]
     Active Substance: ISOTRETINOIN
     Dosage: 40 MG, 2X/DAY WITH FATTY MEAL
     Route: 048
     Dates: end: 20200103
  3. MYORISAN [Suspect]
     Active Substance: ISOTRETINOIN
     Indication: ACNE
     Dosage: 40 MG, 1X/DAY WITH FATTY MEAL
     Route: 048
     Dates: start: 20191025
  4. LAMICTAL [Concomitant]
     Active Substance: LAMOTRIGINE
     Dosage: 1 TABLETS, 1X/DAY
     Route: 048
  5. FISH OIL [Concomitant]
     Active Substance: FISH OIL
     Dosage: 1 DOSAGE UNITS, 1X/DAY
     Route: 048

REACTIONS (3)
  - Arthralgia [Unknown]
  - Mood swings [Unknown]
  - Off label use [Recovered/Resolved]

NARRATIVE: CASE EVENT DATE: 20191025
